FAERS Safety Report 25762562 (Version 2)
Quarter: 2025Q3

REPORT INFORMATION
  Report Type: Spontaneous
  Country: US (occurrence: US)
  Receive Date: 20250904
  Receipt Date: 20250919
  Transmission Date: 20251020
  Serious: Yes (Hospitalization, Other)
  Sender: INCYTE
  Company Number: US-INCYTE CORPORATION-2025IN009333

PATIENT

DRUGS (1)
  1. JAKAFI [Suspect]
     Active Substance: RUXOLITINIB
     Indication: Aplastic anaemia
     Dosage: 5 MILLIGRAM, BID

REACTIONS (4)
  - Complications of bone marrow transplant [Unknown]
  - Bone marrow disorder [Unknown]
  - Abscess limb [Not Recovered/Not Resolved]
  - Off label use [Unknown]
